FAERS Safety Report 5490063-7 (Version None)
Quarter: 2007Q4

REPORT INFORMATION
  Report Type: 
  Country: None (occurrence: None)
  Receive Date: 20071018
  Receipt Date: 20071010
  Transmission Date: 20080405
  Serious: Yes (Other)
  Sender: FDA-Public Use
  Company Number: BE-ABBOTT-07P-013-0420394-00

PATIENT
  Sex: Male
  Weight: 90 kg

DRUGS (1)
  1. REDUCTIL 15MG [Suspect]
     Indication: WEIGHT DECREASED
     Dates: start: 20070501, end: 20070615

REACTIONS (1)
  - HEPATITIS TOXIC [None]
